FAERS Safety Report 7811590-0 (Version None)
Quarter: 2011Q4

REPORT INFORMATION
  Report Type: 
  Country: None (occurrence: None)
  Receive Date: 20111011
  Receipt Date: 20110929
  Transmission Date: 20120403
  Serious: Yes (Other)
  Sender: FDA-Public Use
  Company Number: 1000024342

PATIENT
  Age: 42 Year
  Sex: Female

DRUGS (5)
  1. KLONOPIN [Suspect]
     Indication: GENERALISED ANXIETY DISORDER
     Dosage: 1 MG (0.5 MG,2 IN 1 D),ORAL
     Route: 048
     Dates: start: 20110809
  2. SYNTHROID (LEVOTHYROXINE SODIUM) (LEVOTHYROXINE SODIUM) [Concomitant]
  3. VIIBRYD [Suspect]
     Indication: MAJOR DEPRESSION
     Dosage: 10 MG (10 MG,1 IN 1 D),ORAL ; 20 MG (20 MG,1 IN 1 D),ORAL
     Route: 048
     Dates: start: 20110816, end: 20110822
  4. VIIBRYD [Suspect]
     Indication: MAJOR DEPRESSION
     Dosage: 10 MG (10 MG,1 IN 1 D),ORAL ; 20 MG (20 MG,1 IN 1 D),ORAL
     Route: 048
     Dates: start: 20110809, end: 20110815
  5. VIIBRYD [Suspect]
     Indication: MAJOR DEPRESSION
     Dosage: 40 MG (40 MG,1 IN 1 D),ORAL
     Route: 048
     Dates: start: 20110823, end: 20110919

REACTIONS (3)
  - HALLUCINATION [None]
  - SUICIDE ATTEMPT [None]
  - AGGRESSION [None]
